FAERS Safety Report 9134256 (Version 1)
Quarter: 2013Q1

REPORT INFORMATION
  Report Type: Spontaneous
  Country: US (occurrence: US)
  Receive Date: 20130304
  Receipt Date: 20130304
  Transmission Date: 20140127
  Serious: No
  Sender: FDA-Public Use
  Company Number: US-BIOGENIDEC-2013BI019532

PATIENT
  Sex: Female

DRUGS (1)
  1. TYSABRI [Suspect]
     Indication: MULTIPLE SCLEROSIS
     Route: 042
     Dates: start: 20120604

REACTIONS (9)
  - Mobility decreased [Unknown]
  - Emotional disorder [Unknown]
  - Fall [Recovered/Resolved]
  - Depression [Unknown]
  - Memory impairment [Unknown]
  - Bladder disorder [Unknown]
  - Reading disorder [Unknown]
  - Suicidal ideation [Unknown]
  - Fatigue [Unknown]
